FAERS Safety Report 6332388-9 (Version None)
Quarter: 2009Q3

REPORT INFORMATION
  Report Type: 
  Country: None (occurrence: None)
  Receive Date: 20090828
  Receipt Date: 20090825
  Transmission Date: 20100115
  Serious: Yes (Death)
  Sender: FDA-Public Use
  Company Number: JP-JNJFOC-20090805554

PATIENT
  Age: 68 Year
  Sex: Male

DRUGS (5)
  1. DUROTEP [Suspect]
     Route: 062
  2. DUROTEP [Suspect]
     Route: 062
  3. DUROTEP [Suspect]
     Indication: CANCER PAIN
     Route: 062
  4. DICLOFENAC SODIUM [Concomitant]
     Route: 054
  5. MOHRUS [Concomitant]
     Route: 062

REACTIONS (2)
  - COUGH [None]
  - OESOPHAGEAL CARCINOMA [None]
